FAERS Safety Report 16249060 (Version 2)
Quarter: 2019Q2

REPORT INFORMATION
  Report Type: Spontaneous
  Country: US (occurrence: US)
  Receive Date: 20190429
  Receipt Date: 20190507
  Transmission Date: 20190711
  Serious: Yes (Hospitalization)
  Sender: FDA-Public Use
  Company Number: US-ABBVIE-19S-163-2762138-00

PATIENT
  Age: 29 Year

DRUGS (2)
  1. LUPRON [Suspect]
     Active Substance: LEUPROLIDE ACETATE
     Route: 030
     Dates: start: 20190405, end: 20190405
  2. LUPRON [Suspect]
     Active Substance: LEUPROLIDE ACETATE
     Indication: PRODUCT USED FOR UNKNOWN INDICATION
     Route: 030
     Dates: start: 20190308, end: 20190308

REACTIONS (1)
  - Thrombotic thrombocytopenic purpura [Unknown]

NARRATIVE: CASE EVENT DATE: 201904
